FAERS Safety Report 23272465 (Version 2)
Quarter: 2024Q2

REPORT INFORMATION
  Report Type: Spontaneous
  Country: US (occurrence: US)
  Receive Date: 20231207
  Receipt Date: 20240412
  Transmission Date: 20240716
  Serious: Yes (Hospitalization, Other)
  Sender: FDA-Public Use
  Company Number: US-SUN PHARMACEUTICAL INDUSTRIES LTD-2023R1-422357

PATIENT
  Age: 28 Year
  Sex: Male

DRUGS (1)
  1. ZONISAMIDE [Suspect]
     Active Substance: ZONISAMIDE
     Indication: Epilepsy
     Route: 065

REACTIONS (2)
  - Renal tubular acidosis [Recovered/Resolved]
  - Hypokalaemia [Recovered/Resolved]
